FAERS Safety Report 9031719 (Version 1)
Quarter: 2013Q1

REPORT INFORMATION
  Report Type: Report from Study
  Country: US (occurrence: US)
  Receive Date: 20130124
  Receipt Date: 20130124
  Transmission Date: 20140127
  Serious: Yes (Hospitalization, Other)
  Sender: FDA-Public Use
  Company Number: US-BAYER-2012-122077

PATIENT
  Age: 71 Year
  Sex: Male
  Weight: 119.73 kg

DRUGS (16)
  1. STIVARGA [Suspect]
     Indication: COLORECTAL CANCER METASTATIC
     Dosage: 40 MG, QID
     Route: 048
     Dates: start: 20121114, end: 20121115
  2. STIVARGA [Suspect]
     Indication: COLORECTAL CANCER METASTATIC
     Dosage: 80 MG, QD
     Route: 048
     Dates: start: 20121122
  3. STIVARGA [Suspect]
     Indication: COLORECTAL CANCER METASTATIC
     Dosage: 40 MG, TID
     Route: 048
  4. STIVARGA [Suspect]
     Indication: COLORECTAL CANCER METASTATIC
     Dosage: 160 MG, QD (40 MG, 4 TABLETS)
     Route: 048
     Dates: start: 20121126, end: 20121214
  5. STIVARGA [Suspect]
     Indication: COLORECTAL CANCER METASTATIC
     Dosage: 3 TABLETS
     Route: 048
  6. METFORMIN [Concomitant]
     Dosage: DAILY DOSE 500 MG
  7. SIMVASTATIN [Concomitant]
     Dosage: DAILY DOSE 10 MG
  8. NOVOLOG [Concomitant]
     Dosage: DAILY DOSE 100 ML
     Route: 042
  9. METOPROLOL [Concomitant]
     Indication: BLOOD PRESSURE ABNORMAL
     Dosage: 50 MG, BID
  10. VITAMIN B [Concomitant]
  11. FISH OIL [Concomitant]
  12. MULTIVITAMIN [Concomitant]
  13. ALBUTEROL [Concomitant]
     Dosage: 2 PUFFS PRN
  14. ASPIRIN [Concomitant]
     Indication: ANTICOAGULANT THERAPY
     Dosage: 1 DF, QD
  15. LISINOPRIL [Concomitant]
     Indication: BLOOD CHOLESTEROL ABNORMAL
     Dosage: 20 MG, QD
  16. ZINC [Concomitant]
     Dosage: 50 MG

REACTIONS (8)
  - Hypertension [Recovered/Resolved]
  - Epistaxis [Recovered/Resolved]
  - Brain neoplasm [None]
  - Cerebrovascular accident [Not Recovered/Not Resolved]
  - Nausea [Recovered/Resolved]
  - Dizziness [Not Recovered/Not Resolved]
  - Dysarthria [Not Recovered/Not Resolved]
  - Hypoaesthesia [Not Recovered/Not Resolved]
